FAERS Safety Report 5323999-8 (Version None)
Quarter: 2007Q2

REPORT INFORMATION
  Report Type: 
  Country: None (occurrence: None)
  Receive Date: 20070514
  Receipt Date: 20070503
  Transmission Date: 20071010
  Serious: Yes (Other)
  Sender: FDA-Public Use
  Company Number: US-JNJFOC-20070501765

PATIENT
  Sex: Male

DRUGS (3)
  1. FENTANYL [Suspect]
     Route: 062
  2. FENTANYL [Suspect]
     Indication: PAIN
     Route: 062
  3. LISINOPRIL [Concomitant]
     Indication: HYPERTENSION
     Route: 048

REACTIONS (10)
  - APPLICATION SITE IRRITATION [None]
  - ASPIRATION [None]
  - DECUBITUS ULCER [None]
  - DEVICE LEAKAGE [None]
  - DRUG INEFFECTIVE [None]
  - FALL [None]
  - OXYGEN SATURATION DECREASED [None]
  - SEDATION [None]
  - SOMNOLENCE [None]
  - WRONG TECHNIQUE IN DRUG USAGE PROCESS [None]
